FAERS Safety Report 18415806 (Version 2)
Quarter: 2020Q4

REPORT INFORMATION
  Report Type: Spontaneous
  Country: JP (occurrence: JP)
  Receive Date: 20201022
  Receipt Date: 20201109
  Transmission Date: 20210114
  Serious: Yes (Hospitalization)
  Sender: FDA-Public Use
  Company Number: JP-ELI_LILLY_AND_COMPANY-JP202010007758

PATIENT
  Age: 35 Year
  Sex: Male

DRUGS (2)
  1. DOCETAXEL. [Concomitant]
     Active Substance: DOCETAXEL
     Indication: LUNG ADENOCARCINOMA
     Dosage: 100 MG, CYCLICAL
     Route: 042
     Dates: start: 20191203, end: 20200821
  2. CYRAMZA [Suspect]
     Active Substance: RAMUCIRUMAB
     Indication: LUNG ADENOCARCINOMA
     Dosage: 700 MG, CYCLICAL
     Route: 042
     Dates: start: 20191203, end: 20200821

REACTIONS (2)
  - Pneumothorax [Recovering/Resolving]
  - Tumour cavitation [Recovered/Resolved]

NARRATIVE: CASE EVENT DATE: 20200911
